FAERS Safety Report 24630954 (Version 4)
Quarter: 2025Q1

REPORT INFORMATION
  Report Type: Spontaneous
  Country: DE (occurrence: DE)
  Receive Date: 20241118
  Receipt Date: 20250130
  Transmission Date: 20250409
  Serious: Yes (Life-Threatening, Hospitalization, Other)
  Sender: NOVARTIS
  Company Number: None

PATIENT
  Age: 60 Year
  Sex: Female

DRUGS (5)
  1. SIPONIMOD [Suspect]
     Active Substance: SIPONIMOD
     Indication: Secondary progressive multiple sclerosis
     Route: 048
     Dates: start: 20240201, end: 20240905
  2. PREDNISOLONE [Concomitant]
     Active Substance: PREDNISOLONE
     Indication: Rheumatoid arthritis
     Route: 065
  3. LEVETIRACETAM [Concomitant]
     Active Substance: LEVETIRACETAM
     Indication: Seizure
     Dosage: 1 G, TID
     Route: 065
  4. LACOSAMIDE [Concomitant]
     Active Substance: LACOSAMIDE
     Indication: Seizure
     Dosage: 200 MG, BID
     Route: 065
  5. CLONAZEPAM [Concomitant]
     Active Substance: CLONAZEPAM
     Indication: Seizure
     Dosage: 0.5 MG, TID
     Route: 065

REACTIONS (12)
  - Disturbance in attention [Recovered/Resolved with Sequelae]
  - Delirium [Recovered/Resolved]
  - Blindness cortical [Recovering/Resolving]
  - Hallucination, visual [Recovered/Resolved]
  - Hyperkinesia [Recovering/Resolving]
  - Headache [Recovered/Resolved]
  - Psychotic behaviour [Recovered/Resolved]
  - Aggression [Recovered/Resolved]
  - Hemiparesis [Recovering/Resolving]
  - Lymphopenia [Recovering/Resolving]
  - Brain oedema [Recovering/Resolving]
  - Status epilepticus [Recovering/Resolving]

NARRATIVE: CASE EVENT DATE: 20240905
